FAERS Safety Report 12921550 (Version 1)
Quarter: 2016Q4

REPORT INFORMATION
  Report Type: Spontaneous
  Country: US (occurrence: US)
  Receive Date: 20161108
  Receipt Date: 20161108
  Transmission Date: 20170207
  Serious: Yes (Other)
  Sender: FDA-Public Use
  Company Number: US-CREALTA PHARMACEUTICALS-2015S1000067

PATIENT
  Age: 73 Year
  Sex: Female
  Weight: 67.19 kg

DRUGS (5)
  1. KRYSTEXXA [Suspect]
     Active Substance: PEGLOTICASE
     Indication: GOUT
     Route: 042
     Dates: start: 20151224, end: 20151224
  2. SOLU-MEDROL [Concomitant]
     Active Substance: METHYLPREDNISOLONE SODIUM SUCCINATE
     Indication: ALLERGY PROPHYLAXIS
     Dates: start: 20151224
  3. KRYSTEXXA [Suspect]
     Active Substance: PEGLOTICASE
     Route: 042
     Dates: start: 20151211, end: 20151211
  4. BENADRYL [Concomitant]
     Active Substance: DIPHENHYDRAMINE HYDROCHLORIDE
     Indication: ALLERGY PROPHYLAXIS
     Dates: start: 20151224
  5. TYLENOL [Concomitant]
     Active Substance: ACETAMINOPHEN
     Indication: ALLERGY PROPHYLAXIS
     Dates: start: 20151224

REACTIONS (7)
  - Wheezing [None]
  - Back pain [None]
  - Dyspnoea [None]
  - Therapeutic response decreased [Unknown]
  - Infusion related reaction [Recovered/Resolved]
  - Blood pressure diastolic increased [None]
  - Pyrexia [None]

NARRATIVE: CASE EVENT DATE: 20151224
